FAERS Safety Report 4756921-3 (Version None)
Quarter: 2005Q3

REPORT INFORMATION
  Report Type: 
  Country: None (occurrence: None)
  Receive Date: 20050830
  Receipt Date: 20050823
  Transmission Date: 20060218
  Serious: Yes (Other)
  Sender: FDA-Public Use
  Company Number: US-JNJFOC-20050604190

PATIENT
  Sex: Male
  Weight: 85.73 kg

DRUGS (20)
  1. REMICADE [Suspect]
     Route: 042
  2. REMICADE [Suspect]
     Route: 042
  3. REMICADE [Suspect]
     Dosage: 7 VIALS
     Route: 042
  4. REMICADE [Suspect]
     Route: 042
  5. REMICADE [Suspect]
     Route: 042
  6. REMICADE [Suspect]
     Route: 042
  7. REMICADE [Suspect]
     Route: 042
  8. REMICADE [Suspect]
     Route: 042
  9. REMICADE [Suspect]
     Route: 042
  10. REMICADE [Suspect]
     Route: 042
  11. REMICADE [Suspect]
     Dosage: 5 VIALS.
     Route: 042
  12. REMICADE [Suspect]
     Dosage: 5 VIALS
     Route: 042
  13. REMICADE [Suspect]
     Dosage: 4 VIALS
     Route: 042
  14. REMICADE [Suspect]
     Dosage: 3 VIALS
     Route: 042
  15. REMICADE [Suspect]
     Dosage: 3 VIALS
     Route: 042
  16. REMICADE [Suspect]
     Indication: RHEUMATOID ARTHRITIS
     Dosage: 3 VIALS
     Route: 042
  17. METHOTREXATE [Concomitant]
  18. PREDNISONE TAB [Concomitant]
  19. SOLU-CORTEF [Concomitant]
     Indication: PREMEDICATION
  20. BENADRYL [Concomitant]
     Indication: PREMEDICATION

REACTIONS (5)
  - ANAPHYLACTIC SHOCK [None]
  - BACK PAIN [None]
  - CEREBROVASCULAR ACCIDENT [None]
  - INFUSION RELATED REACTION [None]
  - RHEUMATOID ARTHRITIS [None]
